FAERS Safety Report 8460203-6 (Version None)
Quarter: 2012Q2

REPORT INFORMATION
  Report Type: 
  Country: None (occurrence: None)
  Receive Date: 20120323
  Receipt Date: 20111011
  Transmission Date: 20120825
  Serious: Yes (Hospitalization, Other)
  Sender: FDA-Public Use
  Company Number: 163-21880-11101758

PATIENT
  Age: 69 Year
  Sex: Male

DRUGS (5)
  1. REVLIMID [Suspect]
     Indication: MYELODYSPLASTIC SYNDROME
     Dosage: 25 MG, 1 IN 1 D, PO 25 MG, 1 IN 1 D, PO 10 MG, QD FOR 28 DAYS, PO
     Route: 048
     Dates: start: 20061001
  2. REVLIMID [Suspect]
     Indication: MULTIPLE MYELOMA
     Dosage: 25 MG, 1 IN 1 D, PO 25 MG, 1 IN 1 D, PO 10 MG, QD FOR 28 DAYS, PO
     Route: 048
     Dates: start: 20061001
  3. REVLIMID [Suspect]
     Indication: MYELODYSPLASTIC SYNDROME
     Dosage: 25 MG, 1 IN 1 D, PO 25 MG, 1 IN 1 D, PO 10 MG, QD FOR 28 DAYS, PO
     Route: 048
     Dates: start: 20090301
  4. REVLIMID [Suspect]
     Indication: MULTIPLE MYELOMA
     Dosage: 25 MG, 1 IN 1 D, PO 25 MG, 1 IN 1 D, PO 10 MG, QD FOR 28 DAYS, PO
     Route: 048
     Dates: start: 20090301
  5. REVLIMID [Suspect]

REACTIONS (3)
  - DEHYDRATION [None]
  - PNEUMONIA [None]
  - RED BLOOD CELL COUNT DECREASED [None]
